FAERS Safety Report 16857655 (Version 2)
Quarter: 2019Q4

REPORT INFORMATION
  Report Type: Report from Study
  Country: US (occurrence: US)
  Receive Date: 20190926
  Receipt Date: 20191112
  Transmission Date: 20200122
  Serious: No
  Sender: FDA-Public Use
  Company Number: PHEH2019US039608

PATIENT
  Age: 60 Year
  Sex: Female

DRUGS (2)
  1. METFORMIN [Concomitant]
     Active Substance: METFORMIN HYDROCHLORIDE
     Indication: PRODUCT USED FOR UNKNOWN INDICATION
     Route: 065
  2. GILENYA [Suspect]
     Active Substance: FINGOLIMOD HYDROCHLORIDE
     Indication: MULTIPLE SCLEROSIS
     Dosage: 0.5 MG, QD
     Route: 048
     Dates: start: 20190920

REACTIONS (7)
  - Nasopharyngitis [Unknown]
  - Asthenia [Unknown]
  - Vision blurred [Unknown]
  - Photophobia [Unknown]
  - Viral infection [Recovering/Resolving]
  - Dry eye [Unknown]
  - Fatigue [Unknown]

NARRATIVE: CASE EVENT DATE: 20190920
